FAERS Safety Report 4336093-X (Version None)
Quarter: 2004Q1

REPORT INFORMATION
  Report Type: 
  Country: None (occurrence: None)
  Receive Date: 20040329
  Receipt Date: 20040105
  Transmission Date: 20041129
  Serious: No
  Sender: FDA-Public Use
  Company Number: USA040155837

PATIENT
  Age: 11 Year
  Sex: Female
  Weight: 44 kg

DRUGS (1)
  1. STRATTERA [Suspect]
     Indication: ATTENTION DEFICIT/HYPERACTIVITY DISORDER
     Dosage: 40 MG/DAY
     Dates: start: 20030401

REACTIONS (5)
  - FATIGUE [None]
  - FEELING HOT [None]
  - INFLUENZA LIKE ILLNESS [None]
  - SOMNOLENCE [None]
  - WEIGHT DECREASED [None]
